FAERS Safety Report 26111120 (Version 2)
Quarter: 2025Q4

REPORT INFORMATION
  Report Type: Spontaneous
  Country: US (occurrence: US)
  Receive Date: 20251202
  Receipt Date: 20251205
  Transmission Date: 20260118
  Serious: Yes (Death, Life-Threatening, Hospitalization, Other)
  Sender: DR REDDYS
  Company Number: US-DRL-USA-USA/2025/11/018016

PATIENT
  Age: 74 Year
  Sex: Male

DRUGS (1)
  1. AMIODARONE [Suspect]
     Active Substance: AMIODARONE
     Indication: Product used for unknown indication

REACTIONS (5)
  - Cardiogenic shock [Fatal]
  - Thyrotoxic crisis [Fatal]
  - Hyperthyroidism [Recovering/Resolving]
  - Cardiac arrest [Unknown]
  - Ventricular tachycardia [Unknown]
